FAERS Safety Report 9704648 (Version 1)
Quarter: 2013Q4

REPORT INFORMATION
  Report Type: Spontaneous
  Country: US (occurrence: None)
  Receive Date: 20131121
  Receipt Date: 20131121
  Transmission Date: 20140711
  Serious: Yes (Hospitalization)
  Sender: FDA-Public Use
  Company Number: None

PATIENT
  Age: 43 Year
  Sex: Female

DRUGS (1)
  1. LEVAQUIN [Suspect]
     Indication: BRONCHITIS
     Dates: start: 20110330, end: 20110408

REACTIONS (6)
  - Drug-induced liver injury [None]
  - Hepatic fibrosis [None]
  - Gallbladder enlargement [None]
  - Procedural pain [None]
  - Cholelithiasis [None]
  - Hepatitis C virus test positive [None]
